FAERS Safety Report 13431182 (Version 1)
Quarter: 2017Q2

REPORT INFORMATION
  Report Type: Spontaneous
  Country: US (occurrence: US)
  Receive Date: 20170412
  Receipt Date: 20170412
  Transmission Date: 20170830
  Serious: No
  Sender: FDA-Public Use
  Company Number: None

PATIENT
  Age: 86 Year
  Sex: Female
  Weight: 81.65 kg

DRUGS (3)
  1. PREVNAR [Suspect]
     Active Substance: PNEUMOCOCCAL 7-VALENT CONJUGATE VACCINE (DIPHTHERIA CRM197 PROTEIN)
     Indication: PRODUCT USED FOR UNKNOWN INDICATION
  2. CYCLOBENZAPR [Suspect]
     Active Substance: CYCLOBENZAPRINE
     Indication: PAIN
     Dosage: 30 PILLS 1-3 TIMES A DAY INJECTION BY MOUTH
     Route: 048
     Dates: start: 20170202, end: 20170303
  3. WARFIN [Concomitant]
     Active Substance: WARFARIN

REACTIONS (11)
  - Chills [None]
  - Hot flush [None]
  - Constipation [None]
  - Chest discomfort [None]
  - Headache [None]
  - Insomnia [None]
  - Malaise [None]
  - Vision blurred [None]
  - Diarrhoea [None]
  - Dizziness [None]
  - Injection site pain [None]

NARRATIVE: CASE EVENT DATE: 20170202
